APPROVED DRUG PRODUCT: ROCEPHIN
Active Ingredient: CEFTRIAXONE SODIUM
Strength: EQ 500MG BASE/VIAL
Dosage Form/Route: INJECTABLE;INJECTION
Application: A062654 | Product #001
Applicant: HOFFMANN LA ROCHE INC
Approved: Apr 30, 1987 | RLD: No | RS: No | Type: DISCN